FAERS Safety Report 7570199-7 (Version None)
Quarter: 2011Q2

REPORT INFORMATION
  Report Type: 
  Country: None (occurrence: None)
  Receive Date: 20110622
  Receipt Date: 20110622
  Transmission Date: 20111010
  Serious: Yes (Other)
  Sender: FDA-Public Use
  Company Number: None

PATIENT
  Sex: Male
  Weight: 127.0072 kg

DRUGS (1)
  1. LEXAPRO [Suspect]
     Indication: MAJOR DEPRESSION
     Dosage: 20 MG 1.5 DAILY ORAL
     Route: 048
     Dates: start: 20100501

REACTIONS (2)
  - DRUG DEPENDENCE [None]
  - PARAESTHESIA [None]
